FAERS Safety Report 24255131 (Version 2)
Quarter: 2025Q2

REPORT INFORMATION
  Report Type: Spontaneous
  Country: US (occurrence: US)
  Receive Date: 20240827
  Receipt Date: 20250508
  Transmission Date: 20250716
  Serious: No
  Sender: BRISTOL-MYERS SQUIBB COMPANY
  Company Number: US-BRISTOL-MYERS SQUIBB COMPANY-2024-135136

PATIENT
  Age: 69 Year
  Sex: Female
  Weight: 150.59 kg

DRUGS (1)
  1. REVLIMID [Suspect]
     Active Substance: LENALIDOMIDE
     Indication: Plasma cell myeloma
     Route: 048

REACTIONS (4)
  - Cystitis [Unknown]
  - Off label use [Unknown]
  - Pruritus [Recovering/Resolving]
  - Skin burning sensation [Recovering/Resolving]
